FAERS Safety Report 5519995-8 (Version None)
Quarter: 2007Q4

REPORT INFORMATION
  Report Type: 
  Country: None (occurrence: None)
  Receive Date: 20071116
  Receipt Date: 20071113
  Transmission Date: 20080405
  Serious: Yes (Other)
  Sender: FDA-Public Use
  Company Number: US-ASTRAZENECA-2007UW02878

PATIENT
  Age: 53 Year
  Sex: Male
  Weight: 118.2 kg

DRUGS (4)
  1. SEROQUEL [Suspect]
     Dosage: 25 MG, 50 MG, 100 MG, 200 MG
     Route: 048
     Dates: start: 20010801
  2. XANAX [Concomitant]
  3. KLONOPIN [Concomitant]
     Dates: start: 19960101, end: 20020101
  4. ZOLOFT [Concomitant]

REACTIONS (5)
  - BLOOD CHOLESTEROL INCREASED [None]
  - BLOOD TRIGLYCERIDES INCREASED [None]
  - DEMENTIA [None]
  - DIABETES MELLITUS [None]
  - DIABETIC NEUROPATHY [None]
